FAERS Safety Report 23289909 (Version 2)
Quarter: 2023Q4

REPORT INFORMATION
  Report Type: Spontaneous
  Country: JP (occurrence: JP)
  Receive Date: 20231212
  Receipt Date: 20231219
  Transmission Date: 20240109
  Serious: Yes (Hospitalization, Other)
  Sender: FDA-Public Use
  Company Number: JP-002147023-NVSJ2023JP017485

PATIENT
  Age: 40 Year
  Sex: Male
  Weight: 78.5 kg

DRUGS (5)
  1. TASIGNA [Suspect]
     Active Substance: NILOTINIB
     Indication: Chronic myeloid leukaemia
     Dosage: 600 MG
     Route: 048
  2. TASIGNA [Suspect]
     Active Substance: NILOTINIB
     Dosage: 300 MG
     Route: 048
  3. TASIGNA [Suspect]
     Active Substance: NILOTINIB
     Dosage: 150 MG
     Route: 048
  4. TASIGNA [Suspect]
     Active Substance: NILOTINIB
     Dosage: 150 MG
     Route: 048
  5. TASIGNA [Suspect]
     Active Substance: NILOTINIB
     Dosage: 300 MG
     Route: 048

REACTIONS (21)
  - Carotid artery stenosis [Recovering/Resolving]
  - Transient ischaemic attack [Recovering/Resolving]
  - Hemiparesis [Unknown]
  - Hypoaesthesia [Unknown]
  - Muscular weakness [Unknown]
  - Gait disturbance [Unknown]
  - Visual impairment [Unknown]
  - Acquired immunodeficiency syndrome [Unknown]
  - Diarrhoea [Unknown]
  - Coating in mouth [Unknown]
  - Pneumocystis jirovecii pneumonia [Unknown]
  - Pyrexia [Unknown]
  - Cough [Unknown]
  - Sputum increased [Unknown]
  - Oropharyngeal pain [Unknown]
  - Hypoxia [Unknown]
  - Dyspnoea [Unknown]
  - HIV infection [Unknown]
  - Liver disorder [Recovering/Resolving]
  - White blood cell count decreased [Unknown]
  - Rash [Recovering/Resolving]
